FAERS Safety Report 9419225 (Version 1)
Quarter: 2013Q3

REPORT INFORMATION
  Report Type: Spontaneous
  Country: US (occurrence: US)
  Receive Date: 20130725
  Receipt Date: 20130725
  Transmission Date: 20140515
  Serious: No
  Sender: FDA-Public Use
  Company Number: US-GLAXOSMITHKLINE-A0980058A

PATIENT
  Age: 77 Year
  Sex: Male

DRUGS (3)
  1. LAMICTAL [Suspect]
     Indication: AFFECTIVE DISORDER
     Route: 048
     Dates: start: 20120531
  2. AVODART [Concomitant]
  3. RAPAFLO [Concomitant]

REACTIONS (2)
  - Feeling of relaxation [Recovered/Resolved]
  - Urinary incontinence [Unknown]
